FAERS Safety Report 7917610-7 (Version None)
Quarter: 2011Q4

REPORT INFORMATION
  Report Type: 
  Country: None (occurrence: None)
  Receive Date: 20111116
  Receipt Date: 20111110
  Transmission Date: 20120403
  Serious: Yes (Hospitalization, Other)
  Sender: FDA-Public Use
  Company Number: NL-ABBOTT-11P-114-0733122-00

PATIENT
  Sex: Female
  Weight: 81 kg

DRUGS (4)
  1. HUMIRA [Suspect]
     Indication: CROHN'S DISEASE
     Route: 058
     Dates: start: 20091101, end: 20111024
  2. CALCIUM CHEW D3 [Concomitant]
     Indication: BLOOD CALCIUM
     Route: 048
  3. CALCIUM CHEW D3 [Concomitant]
     Indication: VITAMIN SUPPLEMENTATION
  4. MIZOLASTINE [Concomitant]
     Indication: HYPERSENSITIVITY
     Dates: start: 20100101

REACTIONS (11)
  - BODY TEMPERATURE INCREASED [None]
  - LYMPHADENOPATHY [None]
  - LYMPHADENECTOMY [None]
  - DRY EYE [None]
  - LACRIMATION INCREASED [None]
  - DRY SKIN [None]
  - ECZEMA [None]
  - DRY MOUTH [None]
  - EYE IRRITATION [None]
  - HIDRADENITIS [None]
  - AUTOIMMUNE HEPATITIS [None]
